FAERS Safety Report 4443518-8 (Version None)
Quarter: 2004Q3

REPORT INFORMATION
  Report Type: 
  Country: None (occurrence: None)
  Receive Date: 20040901
  Receipt Date: 20040817
  Transmission Date: 20050211
  Serious: Yes (Hospitalization)
  Sender: FDA-Public Use
  Company Number: B0343234A

PATIENT
  Age: 61 Year
  Sex: Female

DRUGS (8)
  1. HYCAMTIN [Suspect]
     Indication: PERITONEAL CARCINOMA
  2. CARBOPLATIN [Concomitant]
  3. PACLITAXEL [Concomitant]
  4. WARFARIN SODIUM [Concomitant]
  5. LISINOPRIL [Concomitant]
  6. THIETHYLPERAZINE [Concomitant]
  7. PAROXETINE HYDROCHLORIDE [Concomitant]
  8. MORPHINE [Concomitant]

REACTIONS (5)
  - BRONCHIOLITIS [None]
  - HAEMATOCRIT DECREASED [None]
  - HAEMOGLOBIN DECREASED [None]
  - PROTHROMBIN TIME PROLONGED [None]
  - PULMONARY FIBROSIS [None]
